FAERS Safety Report 5733806-7 (Version None)
Quarter: 2008Q2

REPORT INFORMATION
  Report Type: 
  Country: None (occurrence: None)
  Receive Date: 20080509
  Receipt Date: 20080429
  Transmission Date: 20081010
  Serious: Yes (Other)
  Sender: FDA-Public Use
  Company Number: US-PFIZER INC-2008031601

PATIENT
  Sex: Female
  Weight: 73.5 kg

DRUGS (9)
  1. CLEOCIN PEDIATRIC FLAVORED [Suspect]
     Indication: LOCALISED INFECTION
     Route: 048
     Dates: start: 20080201, end: 20080201
  2. KEFLEX [Suspect]
     Indication: LOCALISED INFECTION
  3. CENTRUM SILVER [Concomitant]
  4. GENERAL NUTRIENTS [Concomitant]
  5. OMEGA 3 [Concomitant]
  6. FISH OIL [Concomitant]
  7. CALCIUM CITRATE [Concomitant]
  8. OMEPRAZOLE [Concomitant]
  9. DICLOFENAC [Concomitant]

REACTIONS (9)
  - BLOOD PRESSURE INCREASED [None]
  - CHEST DISCOMFORT [None]
  - DIARRHOEA [None]
  - DYSPNOEA [None]
  - FATIGUE [None]
  - HYPOTENSION [None]
  - MALAISE [None]
  - MUSCLE SPASMS [None]
  - POOR QUALITY DRUG ADMINISTERED [None]
